FAERS Safety Report 6361142-7 (Version None)
Quarter: 2009Q3

REPORT INFORMATION
  Report Type: 
  Country: None (occurrence: None)
  Receive Date: 20090918
  Receipt Date: 20090917
  Transmission Date: 20100115
  Serious: Yes (Other)
  Sender: FDA-Public Use
  Company Number: US-PFIZER INC-2009228274

PATIENT
  Sex: Female
  Weight: 68.027 kg

DRUGS (6)
  1. LIPITOR [Suspect]
     Indication: BLOOD CHOLESTEROL INCREASED
     Dates: start: 19970101
  2. TYLENOL (CAPLET) [Suspect]
     Indication: ARTHRITIS
     Dates: end: 20080101
  3. MOBIC [Concomitant]
     Dosage: UNK
  4. AVALIDE [Concomitant]
     Dosage: UNK
  5. GLUCOSAMINE [Concomitant]
  6. FISH OIL [Concomitant]

REACTIONS (4)
  - ARTHRITIS [None]
  - HEPATIC ENZYME INCREASED [None]
  - KNEE OPERATION [None]
  - OSTEOARTHRITIS [None]
